FAERS Safety Report 24893949 (Version 1)
Quarter: 2025Q1

REPORT INFORMATION
  Report Type: Spontaneous
  Country: US (occurrence: None)
  Receive Date: 20250128
  Receipt Date: 20250128
  Transmission Date: 20250408
  Serious: No
  Sender: FDA-CTU
  Company Number: None

PATIENT
  Age: 67 Year
  Sex: Male
  Weight: 74.8 kg

DRUGS (2)
  1. XELODA [Suspect]
     Active Substance: CAPECITABINE
  2. ELOXATIN [Suspect]
     Active Substance: OXALIPLATIN

REACTIONS (7)
  - Choking sensation [None]
  - Dyspnoea [None]
  - Dysphagia [None]
  - Hypophagia [None]
  - Anxiety [None]
  - Diarrhoea [None]
  - Dysaesthesia pharynx [None]

NARRATIVE: CASE EVENT DATE: 20250106
